FAERS Safety Report 23783746 (Version 2)
Quarter: 2024Q2

REPORT INFORMATION
  Report Type: Spontaneous
  Country: CA (occurrence: CA)
  Receive Date: 20240425
  Receipt Date: 20240510
  Transmission Date: 20240715
  Serious: Yes (Death, Other)
  Sender: FDA-Public Use
  Company Number: CA-PFIZER INC-PV202400044679

PATIENT
  Age: 51 Year
  Sex: Male

DRUGS (1)
  1. LORBRENA [Suspect]
     Active Substance: LORLATINIB
     Dosage: 75 MG, 1X/DAY (30 DOSE)
     Route: 048
     Dates: start: 20240416

REACTIONS (2)
  - Death [Fatal]
  - Pulmonary haemorrhage [Not Recovered/Not Resolved]

NARRATIVE: CASE EVENT DATE: 20240101
